FAERS Safety Report 6474803-6 (Version None)
Quarter: 2009Q4

REPORT INFORMATION
  Report Type: 
  Country: None (occurrence: None)
  Receive Date: 20091204
  Receipt Date: 20091125
  Transmission Date: 20100525
  Serious: Yes (Hospitalization)
  Sender: FDA-Public Use
  Company Number: CHPA2009US22762

PATIENT
  Age: 84 Year
  Sex: Female
  Weight: 68.027 kg

DRUGS (1)
  1. VOLTAREN [Suspect]
     Indication: OSTEOARTHRITIS
     Dosage: UNK ^ON AND OFF^
     Route: 061
     Dates: start: 20091029, end: 20091122

REACTIONS (4)
  - DEHYDRATION [None]
  - DIZZINESS [None]
  - HEADACHE [None]
  - LABYRINTHITIS [None]
